FAERS Safety Report 10953475 (Version 2)
Quarter: 2015Q2

REPORT INFORMATION
  Report Type: Spontaneous
  Country: US (occurrence: US)
  Receive Date: 20150325
  Receipt Date: 20150511
  Transmission Date: 20150821
  Serious: No
  Sender: FDA-Public Use
  Company Number: US-PFIZER INC-2015100942

PATIENT
  Age: 62 Year
  Sex: Female
  Weight: 42 kg

DRUGS (4)
  1. PROTONIX [Suspect]
     Active Substance: PANTOPRAZOLE SODIUM
     Indication: PEPTIC ULCER
     Dosage: UNK
     Route: 048
     Dates: start: 2011
  2. VITAMIN D [Concomitant]
     Active Substance: CHOLECALCIFEROL
  3. VITAMIN B12 [Concomitant]
     Active Substance: CYANOCOBALAMIN
  4. DILANTIN [Concomitant]
     Active Substance: PHENYTOIN
     Dosage: 100 MG, 4X/DAY
     Route: 048

REACTIONS (4)
  - Malaise [Unknown]
  - Pain [Not Recovered/Not Resolved]
  - Somnolence [Not Recovered/Not Resolved]
  - Urinary tract infection [Unknown]
